FAERS Safety Report 5154284-5 (Version None)
Quarter: 2006Q4

REPORT INFORMATION
  Report Type: 
  Country: None (occurrence: None)
  Receive Date: 20061120
  Receipt Date: 20050624
  Transmission Date: 20070319
  Serious: Yes (Hospitalization)
  Sender: FDA-Public Use
  Company Number: FR-SANOFI-SYNTHELABO-F01200501115

PATIENT
  Sex: Male
  Weight: 57 kg

DRUGS (3)
  1. RADIOTHERAPY [Concomitant]
     Indication: OESOPHAGEAL CARCINOMA
     Dosage: TOTAL DOSE OF FRACTION ADMINISTERED BEFORE SAE:
     Route: 050
  2. CISPLATIN [Suspect]
     Indication: OESOPHAGEAL CARCINOMA
     Dates: start: 20050322, end: 20050602
  3. FLUOROURACIL [Suspect]
     Indication: OESOPHAGEAL CARCINOMA
     Route: 042
     Dates: start: 20050322, end: 20050602

REACTIONS (1)
  - ASTHENIA [None]
